FAERS Safety Report 7722181-4 (Version None)
Quarter: 2011Q3

REPORT INFORMATION
  Report Type: 
  Country: None (occurrence: None)
  Receive Date: 20110831
  Receipt Date: 20110826
  Transmission Date: 20111222
  Serious: Yes (Other)
  Sender: FDA-Public Use
  Company Number: CHPA2011US11582

PATIENT
  Age: 63 Year
  Sex: Male

DRUGS (5)
  1. NICOTINE [Suspect]
     Indication: SMOKING CESSATION THERAPY
     Dosage: 21 MG, QD
     Route: 062
     Dates: start: 20110801
  2. FERROUS SULFATE TAB [Concomitant]
     Dosage: UNK DF, UNK
  3. FOLIC ACID [Concomitant]
     Dosage: UNK DF, UNK
  4. EQUATE (ACETYLSALICYLIC ACID) [Concomitant]
     Dosage: UNK DF, UNK
  5. VITAMIN B-12 [Concomitant]
     Dosage: UNK DF, UNK

REACTIONS (4)
  - TREATMENT NONCOMPLIANCE [None]
  - TRANSFUSION [None]
  - MALAISE [None]
  - OVERDOSE [None]
